FAERS Safety Report 5325793-0 (Version None)
Quarter: 2007Q2

REPORT INFORMATION
  Report Type: 
  Country: None (occurrence: None)
  Receive Date: 20070510
  Receipt Date: 20070504
  Transmission Date: 20071010
  Serious: Yes (Death)
  Sender: FDA-Public Use
  Company Number: URSO-2007-121

PATIENT
  Age: 55 Year
  Sex: Female

DRUGS (6)
  1. URSODIOL [Suspect]
     Dosage: 600MG
     Dates: start: 20020101, end: 20040818
  2. ACTARIT [Suspect]
  3. METHOTREXATE [Suspect]
  4. D-PENICILLAMINE [Suspect]
  5. FAMOTIDINE [Suspect]
  6. DICLOFENAC SODIUM [Suspect]

REACTIONS (1)
  - INTERSTITIAL LUNG DISEASE [None]
